FAERS Safety Report 4404561-8 (Version None)
Quarter: 2004Q3

REPORT INFORMATION
  Report Type: 
  Country: None (occurrence: None)
  Receive Date: 20040722
  Receipt Date: 20040712
  Transmission Date: 20050211
  Serious: Yes (Life-Threatening, Hospitalization)
  Sender: FDA-Public Use
  Company Number: PT-ROCHE-373836

PATIENT
  Age: 39 Year
  Sex: Male

DRUGS (2)
  1. TORADOL [Suspect]
     Indication: ARTHROSCOPY
     Route: 042
     Dates: start: 20030915
  2. CEFAZOLIN [Suspect]
     Indication: DRUG USE FOR UNKNOWN INDICATION
     Route: 042
     Dates: start: 20030915

REACTIONS (5)
  - ANAPHYLACTIC SHOCK [None]
  - HYPOTENSION [None]
  - MALAISE [None]
  - RASH MACULO-PAPULAR [None]
  - TACHYCARDIA [None]
